FAERS Safety Report 11517703 (Version 1)
Quarter: 2015Q3

REPORT INFORMATION
  Report Type: Spontaneous
  Country: KR (occurrence: KR)
  Receive Date: 20150917
  Receipt Date: 20150917
  Transmission Date: 20151125
  Serious: Yes (Other)
  Sender: FDA-Public Use
  Company Number: KR-BAXTER-2015BAX050665

PATIENT
  Age: 64 Year
  Sex: Female

DRUGS (4)
  1. CEFIXIME. [Concomitant]
     Active Substance: CEFIXIME
     Indication: LIVER ABSCESS
     Route: 048
  2. CEFTRIAXONE. [Suspect]
     Active Substance: CEFTRIAXONE
     Indication: LIVER ABSCESS
     Route: 042
  3. BAXTER METRONIDAZOLE INJ. 500MG [Suspect]
     Active Substance: METRONIDAZOLE
     Indication: LIVER ABSCESS
     Route: 042
  4. METRONIDAZOLE. [Concomitant]
     Active Substance: METRONIDAZOLE
     Indication: LIVER ABSCESS
     Route: 048

REACTIONS (2)
  - IgA nephropathy [Recovered/Resolved]
  - Linear IgA disease [Recovered/Resolved]
